FAERS Safety Report 5884484-8 (Version None)
Quarter: 2008Q3

REPORT INFORMATION
  Report Type: 
  Country: None (occurrence: None)
  Receive Date: 20080911
  Receipt Date: 20080903
  Transmission Date: 20090109
  Serious: Yes (Death)
  Sender: FDA-Public Use
  Company Number: 20139

PATIENT
  Sex: Male

DRUGS (12)
  1. CYTARABINE [Suspect]
     Indication: BURKITT'S LYMPHOMA
  2. CYTARABINE [Suspect]
     Indication: DIFFUSE LARGE B-CELL LYMPHOMA
  3. DOXORUBICIN HCL [Suspect]
     Indication: BURKITT'S LYMPHOMA
     Dosage: 50 MG/M2 PER_CYCLE IV
     Route: 042
  4. DOXORUBICIN HCL [Suspect]
     Indication: DIFFUSE LARGE B-CELL LYMPHOMA
     Dosage: 50 MG/M2 PER_CYCLE IV
     Route: 042
  5. METHOTREXATE [Suspect]
     Indication: BURKITT'S LYMPHOMA
     Dosage: 1 G/M2 PER_CYCLE IV
     Route: 042
  6. METHOTREXATE [Suspect]
     Indication: DIFFUSE LARGE B-CELL LYMPHOMA
     Dosage: 1 G/M2 PER_CYCLE IV
     Route: 042
  7. VINCRISTINE [Suspect]
     Indication: BURKITT'S LYMPHOMA
     Dosage: 1.4 MG/M2 PER_CYCLE IV
     Route: 042
  8. VINCRISTINE [Suspect]
     Indication: DIFFUSE LARGE B-CELL LYMPHOMA
     Dosage: 1.4 MG/M2 PER_CYCLE IV
     Route: 042
  9. CYCLOPHOSPHAMIDE [Suspect]
     Indication: BURKITT'S LYMPHOMA
     Dosage: 300 MG/M2 PER_CYCLE IV
     Route: 042
  10. CYCLOPHOSPHAMIDE [Suspect]
     Indication: DIFFUSE LARGE B-CELL LYMPHOMA
     Dosage: 300 MG/M2 PER_CYCLE IV
     Route: 042
  11. DEXAMETHASONE [Suspect]
     Indication: BURKITT'S LYMPHOMA
     Dosage: 40 MG PER_CYCLE PO
     Route: 048
  12. DEXAMETHASONE [Suspect]
     Indication: DIFFUSE LARGE B-CELL LYMPHOMA
     Dosage: 40 MG PER_CYCLE PO
     Route: 048

REACTIONS (4)
  - ACUTE MONOCYTIC LEUKAEMIA [None]
  - MYELODYSPLASTIC SYNDROME [None]
  - REFRACTORY ANAEMIA WITH AN EXCESS OF BLASTS [None]
  - STEM CELL TRANSPLANT [None]
